FAERS Safety Report 5859166-9 (Version None)
Quarter: 2008Q3

REPORT INFORMATION
  Report Type: 
  Country: None (occurrence: None)
  Receive Date: 20080827
  Receipt Date: 20080821
  Transmission Date: 20090109
  Serious: Yes (Life-Threatening, Hospitalization)
  Sender: FDA-Public Use
  Company Number: PHHY2008IT17071

PATIENT
  Age: 75 Year
  Sex: Female

DRUGS (9)
  1. LESCOL XL [Suspect]
     Dosage: 80 MG, QD
     Route: 048
     Dates: start: 20080702, end: 20080731
  2. SIMVASTATIN [Concomitant]
     Dosage: 20 MG, QD
     Route: 048
     Dates: start: 19960101, end: 20080701
  3. WARFARIN SODIUM [Concomitant]
  4. RAMIPRIL [Concomitant]
     Dosage: 10 MG
  5. GLUCOPHAGE [Concomitant]
     Indication: DIABETES MELLITUS
     Dosage: 850 MG
     Route: 048
  6. DILATREND [Concomitant]
     Dosage: 12.5 MG
     Route: 048
  7. ASPIRIN [Concomitant]
  8. DIAMICRON [Concomitant]
  9. LASIX [Concomitant]
     Dosage: UNK
     Route: 048

REACTIONS (4)
  - BACK PAIN [None]
  - MYALGIA [None]
  - MYOGLOBIN BLOOD INCREASED [None]
  - RENAL FAILURE ACUTE [None]
